FAERS Safety Report 6203777-8 (Version None)
Quarter: 2009Q2

REPORT INFORMATION
  Report Type: 
  Country: None (occurrence: None)
  Receive Date: 20090527
  Receipt Date: 20090518
  Transmission Date: 20091009
  Serious: Yes (Other)
  Sender: FDA-Public Use
  Company Number: GR-ELI_LILLY_AND_COMPANY-GR200905003377

PATIENT
  Age: 70 Year
  Sex: Male

DRUGS (6)
  1. ZYPREXA [Suspect]
     Indication: BIPOLAR I DISORDER
     Dosage: UNK UNK, DAILY (1/D)
     Route: 048
     Dates: start: 20080101, end: 20090501
  2. ZYPREXA [Suspect]
     Dosage: 10 MG, DAILY (1/D)
     Route: 048
     Dates: start: 20090501, end: 20090501
  3. CYMBALTA [Concomitant]
     Indication: DEPRESSION
     Dosage: 30 MG, DAILY (1/D)
     Route: 048
     Dates: start: 20070101
  4. LAMICTAL [Concomitant]
     Indication: BIPOLAR I DISORDER
     Dosage: 200 MG, DAILY (1/D)
     Route: 048
     Dates: start: 20070101, end: 20090501
  5. LITHIUM [Concomitant]
     Indication: BIPOLAR I DISORDER
     Dosage: UNK, DAILY (1/D)
     Route: 048
     Dates: start: 20070101
  6. DEPAKENE [Concomitant]
     Indication: BIPOLAR I DISORDER
     Dosage: UNK, UNK
     Route: 048
     Dates: start: 20090501

REACTIONS (5)
  - DYSARTHRIA [None]
  - ERECTILE DYSFUNCTION [None]
  - EXTRAPYRAMIDAL DISORDER [None]
  - HYPOKINESIA [None]
  - PARKINSONIAN GAIT [None]
